FAERS Safety Report 4493458-3 (Version None)
Quarter: 2004Q4

REPORT INFORMATION
  Report Type: 
  Country: None (occurrence: None)
  Receive Date: 20041105
  Receipt Date: 20041101
  Transmission Date: 20050328
  Serious: Yes (Hospitalization)
  Sender: FDA-Public Use
  Company Number: IT-JNJFOC-20041007675

PATIENT
  Age: 46 Year
  Sex: Female

DRUGS (6)
  1. ITRACONAZOLE [Suspect]
     Route: 065
  2. PREDNISONE [Concomitant]
  3. DEFLAZACORT [Concomitant]
     Route: 049
  4. FLUTICASONE PROPIONATE [Concomitant]
     Route: 055
  5. SALMETEROL [Concomitant]
     Route: 055
  6. ALBUTEROL [Concomitant]
     Route: 055

REACTIONS (6)
  - ASTHMA [None]
  - CONDITION AGGRAVATED [None]
  - RENAL FAILURE ACUTE [None]
  - RESPIRATORY ARREST [None]
  - RESPIRATORY FAILURE [None]
  - RHABDOMYOLYSIS [None]
